FAERS Safety Report 26121874 (Version 1)
Quarter: 2025Q4

REPORT INFORMATION
  Report Type: Report from Study
  Country: EU (occurrence: EU)
  Receive Date: 20251204
  Receipt Date: 20251204
  Transmission Date: 20260117
  Serious: Yes (Other)
  Sender: TEVA
  Company Number: EU-TEVA-VS-3397956

PATIENT
  Sex: Female

DRUGS (1)
  1. ELTROMBOPAG [Suspect]
     Active Substance: ELTROMBOPAG
     Indication: Product used for unknown indication
     Route: 065

REACTIONS (5)
  - Thrombocytopenia [Recovered/Resolved]
  - Paraesthesia [Recovered/Resolved]
  - Sleep disorder [Recovered/Resolved]
  - Headache [Recovered/Resolved]
  - Treatment noncompliance [Unknown]
